FAERS Safety Report 9259543 (Version 2)
Quarter: 2013Q3

REPORT INFORMATION
  Report Type: Spontaneous
  Country: US (occurrence: US)
  Receive Date: 20130429
  Receipt Date: 20130704
  Transmission Date: 20140515
  Serious: Yes (Disabling)
  Sender: FDA-Public Use
  Company Number: US-ASTRAZENECA-2013SE27654

PATIENT
  Age: 17179 Day
  Sex: Female

DRUGS (30)
  1. NEXIUM [Suspect]
     Indication: GASTROOESOPHAGEAL REFLUX DISEASE
     Dosage: EVERY MORNING 30 MIN BEFORE EATING
     Route: 048
     Dates: start: 200510
  2. NEXIUM [Suspect]
     Indication: ACQUIRED OESOPHAGEAL WEB
     Dosage: EVERY MORNING 30 MIN BEFORE EATING
     Route: 048
     Dates: start: 200510
  3. NEXIUM [Suspect]
     Indication: GASTROOESOPHAGEAL REFLUX DISEASE
     Route: 048
     Dates: start: 2004
  4. NEXIUM [Suspect]
     Indication: ACQUIRED OESOPHAGEAL WEB
     Route: 048
     Dates: start: 2004
  5. NEXIUM [Suspect]
     Indication: GASTROOESOPHAGEAL REFLUX DISEASE
     Dosage: ONCE
     Route: 048
     Dates: end: 2009
  6. NEXIUM [Suspect]
     Indication: ACQUIRED OESOPHAGEAL WEB
     Dosage: ONCE
     Route: 048
     Dates: end: 2009
  7. NEXIUM [Suspect]
     Indication: GASTROOESOPHAGEAL REFLUX DISEASE
     Route: 048
     Dates: start: 20090915
  8. NEXIUM [Suspect]
     Indication: ACQUIRED OESOPHAGEAL WEB
     Route: 048
     Dates: start: 20090915
  9. ZANTAC [Concomitant]
  10. ZANTAC [Concomitant]
     Route: 048
     Dates: start: 20110427, end: 20130116
  11. RANITIDINE [Concomitant]
     Indication: GASTROOESOPHAGEAL REFLUX DISEASE
     Dosage: ONCE DAILY
  12. FLEXERIL [Concomitant]
     Indication: BACK PAIN
     Dosage: BEFORE BED
  13. FLEXERIL [Concomitant]
     Indication: MUSCLE SPASMS
     Dosage: BEFORE BED
  14. FLEXERIL [Concomitant]
     Indication: BACK PAIN
  15. FLEXERIL [Concomitant]
     Indication: MUSCLE SPASMS
  16. SKELAXIN [Concomitant]
     Indication: PAIN
  17. LIPITOR [Concomitant]
     Indication: BLOOD CHOLESTEROL ABNORMAL
  18. CELEXA [Concomitant]
     Indication: DEPRESSION
     Dates: start: 20120724
  19. PREDNISONE [Concomitant]
     Dates: start: 20040515
  20. PREDNISONE [Concomitant]
     Dates: start: 20070807
  21. ABILIFY [Concomitant]
     Dates: start: 201303
  22. SERTRALINE HCL [Concomitant]
     Dates: start: 20080925
  23. OMEPRAZOLE [Concomitant]
     Dates: start: 20080925
  24. SIMVASTATIN [Concomitant]
     Dates: start: 20110527
  25. METAXALONE [Concomitant]
     Dates: start: 20120822
  26. LOVASTATIN [Concomitant]
     Dates: start: 20121003
  27. PEPCID [Concomitant]
     Indication: GASTROOESOPHAGEAL REFLUX DISEASE
     Dates: start: 20040127
  28. WELLBUTRIN [Concomitant]
     Dates: start: 20050915
  29. ASPIRIN [Concomitant]
     Route: 048
     Dates: start: 20110715, end: 20130116
  30. CLARITIN [Concomitant]
     Route: 048
     Dates: start: 20110427, end: 20130116

REACTIONS (25)
  - Finger deformity [Unknown]
  - Bone disorder [Unknown]
  - Spinal osteoarthritis [Unknown]
  - Carpal tunnel syndrome [Unknown]
  - Osteoporosis [Unknown]
  - Bone density decreased [Unknown]
  - Rib fracture [Unknown]
  - Hand fracture [Unknown]
  - Intervertebral disc degeneration [Unknown]
  - Scoliosis [Unknown]
  - Bone density increased [Unknown]
  - Vitamin D deficiency [Unknown]
  - Blood calcium decreased [Unknown]
  - Bone pain [Unknown]
  - Lung disorder [Unknown]
  - Cataract [Unknown]
  - Osteoarthritis [Unknown]
  - Arthritis [Unknown]
  - Back pain [Unknown]
  - Osteopenia [Unknown]
  - Radiculopathy [Unknown]
  - Faecal incontinence [Unknown]
  - Musculoskeletal pain [Unknown]
  - Rotator cuff syndrome [Unknown]
  - Depression [Unknown]
